FAERS Safety Report 4634441-4 (Version None)
Quarter: 2005Q2

REPORT INFORMATION
  Report Type: 
  Country: None (occurrence: None)
  Receive Date: 20050411
  Receipt Date: 20050329
  Transmission Date: 20051028
  Serious: Yes (Other)
  Sender: FDA-Public Use
  Company Number: HQWYE618101APR05

PATIENT
  Age: 60 Year

DRUGS (1)
  1. AVOCIN (PIPERACILLIN, INJECTION) [Suspect]
     Indication: PYREXIA
     Dosage: 450 MG 2X PER 1 DAY
     Route: 042
     Dates: start: 20020211, end: 20020211

REACTIONS (1)
  - ANGIONEUROTIC OEDEMA [None]
